FAERS Safety Report 7946437-5 (Version None)
Quarter: 2011Q4

REPORT INFORMATION
  Report Type: 
  Country: None (occurrence: None)
  Receive Date: 20111129
  Receipt Date: 20111126
  Transmission Date: 20120403
  Serious: Yes (Other)
  Sender: FDA-Public Use
  Company Number: US-BAYER-2011-114306

PATIENT

DRUGS (2)
  1. EXCEDERINE [Suspect]
  2. ALEVE (CAPLET) [Suspect]

REACTIONS (2)
  - DYSPNOEA [None]
  - CARDIAC DISORDER [None]
